FAERS Safety Report 5162153-X (Version None)
Quarter: 2006Q4

REPORT INFORMATION
  Report Type: 
  Country: None (occurrence: None)
  Receive Date: 20061120
  Receipt Date: 20061114
  Transmission Date: 20070319
  Serious: Yes (Disabling)
  Sender: FDA-Public Use
  Company Number: HQWYE614415NOV06

PATIENT
  Age: 78 Year
  Sex: Female

DRUGS (2)
  1. CORDARONE [Suspect]
     Indication: ARRHYTHMIA
     Dosage: ORAL
     Route: 048
     Dates: start: 19980101, end: 20060501
  2. KARDEGIC (ACETYLSALICYLIC LYSINE) [Concomitant]

REACTIONS (2)
  - BURSITIS [None]
  - PHOTOSENSITIVITY REACTION [None]
